FAERS Safety Report 22072866 (Version 1)
Quarter: 2023Q1

REPORT INFORMATION
  Report Type: Spontaneous
  Country: US (occurrence: US)
  Receive Date: 20230308
  Receipt Date: 20230308
  Transmission Date: 20230417
  Serious: Yes (Death, Other)
  Sender: FDA-Public Use
  Company Number: US-JNJFOC-20230305809

PATIENT
  Sex: Female

DRUGS (2)
  1. CONCERTA [Suspect]
     Active Substance: METHYLPHENIDATE HYDROCHLORIDE
     Indication: Narcolepsy
     Route: 065
  2. METHYLPHENIDATE HYDROCHLORIDE [Suspect]
     Active Substance: METHYLPHENIDATE HYDROCHLORIDE
     Indication: Narcolepsy
     Route: 065

REACTIONS (3)
  - Sepsis [Fatal]
  - Nephrolithiasis [Recovered/Resolved]
  - Off label use [Unknown]
